FAERS Safety Report 6775563-1 (Version None)
Quarter: 2010Q2

REPORT INFORMATION
  Report Type: 
  Country: None (occurrence: None)
  Receive Date: 20100617
  Receipt Date: 20100607
  Transmission Date: 20101027
  Serious: Yes (Hospitalization)
  Sender: FDA-Public Use
  Company Number: US-ELI_LILLY_AND_COMPANY-US201006002559

PATIENT
  Sex: Female

DRUGS (4)
  1. FORTEO [Suspect]
     Indication: OSTEOPOROSIS
     Dosage: 20 UG, DAILY (1/D)
  2. CELEXA [Concomitant]
  3. CARBATROL [Concomitant]
  4. PLAQUENIL [Concomitant]
     Indication: SYSTEMIC LUPUS ERYTHEMATOSUS

REACTIONS (8)
  - ANAEMIA [None]
  - ASTHENIA [None]
  - DYSPNOEA [None]
  - FATIGUE [None]
  - GASTROINTESTINAL HAEMORRHAGE [None]
  - OESOPHAGEAL DISORDER [None]
  - PALLOR [None]
  - PALPITATIONS [None]
